FAERS Safety Report 23728052 (Version 3)
Quarter: 2025Q1

REPORT INFORMATION
  Report Type: Report from Study
  Country: US (occurrence: US)
  Receive Date: 20240410
  Receipt Date: 20250331
  Transmission Date: 20250409
  Serious: Yes (Other)
  Sender: EMD SERONO INC
  Company Number: US-Merck Healthcare KGaA-2024015993

PATIENT
  Sex: Female

DRUGS (2)
  1. MAVENCLAD [Suspect]
     Active Substance: CLADRIBINE
     Indication: Multiple sclerosis
  2. METRONIDAZOLE [Concomitant]
     Active Substance: METRONIDAZOLE
     Indication: Dermatitis

REACTIONS (5)
  - Lymphoma [Unknown]
  - Lymphadenopathy [Not Recovered/Not Resolved]
  - Lymphadenitis bacterial [Unknown]
  - Perioral dermatitis [Recovering/Resolving]
  - Dermatitis [Recovered/Resolved]
